FAERS Safety Report 17015377 (Version 1)
Quarter: 2019Q4

REPORT INFORMATION
  Report Type: Report from Study
  Country: US (occurrence: US)
  Receive Date: 20191111
  Receipt Date: 20191111
  Transmission Date: 20200122
  Serious: Yes (Death, Other)
  Sender: FDA-Public Use
  Company Number: US-ROCHE-2461453

PATIENT

DRUGS (4)
  1. PEMBROLIZUMAB. [Suspect]
     Active Substance: PEMBROLIZUMAB
     Indication: NON-SMALL CELL LUNG CANCER STAGE IV
     Route: 065
  2. METFORMIN [Suspect]
     Active Substance: METFORMIN HYDROCHLORIDE
     Indication: NON-SMALL CELL LUNG CANCER STAGE IV
     Dosage: MEDIAN METFORMIN DOSE WAS 500 MG TWICE DAILY. THE RANGE OF DOSES WAS 500 MG DAILY TO 1000 MG TWICE D
     Route: 065
  3. NIVOLUMAB [Suspect]
     Active Substance: NIVOLUMAB
     Indication: NON-SMALL CELL LUNG CANCER STAGE IV
     Route: 065
  4. ATEZOLIZUMAB. [Suspect]
     Active Substance: ATEZOLIZUMAB
     Indication: NON-SMALL CELL LUNG CANCER STAGE IV
     Route: 065

REACTIONS (8)
  - Pneumonitis [Unknown]
  - Rash [Unknown]
  - Immune system disorder [Unknown]
  - Death [Fatal]
  - Fatigue [Unknown]
  - Colitis [Unknown]
  - Transaminases increased [Unknown]
  - Acute kidney injury [Unknown]
